FAERS Safety Report 23377863 (Version 1)
Quarter: 2024Q1

REPORT INFORMATION
  Report Type: Spontaneous
  Country: CN (occurrence: CN)
  Receive Date: 20240108
  Receipt Date: 20240108
  Transmission Date: 20240410
  Serious: Yes (Hospitalization, Other)
  Sender: FDA-Public Use
  Company Number: CN-BAYER-2024A002836

PATIENT
  Age: 76 Year
  Sex: Female
  Weight: 60 kg

DRUGS (3)
  1. AVELOX [Suspect]
     Active Substance: MOXIFLOXACIN HYDROCHLORIDE
     Indication: Anti-infective therapy
     Dosage: 400 MG, QD
     Route: 048
     Dates: start: 20231231, end: 20231231
  2. AVELOX [Suspect]
     Active Substance: MOXIFLOXACIN HYDROCHLORIDE
     Indication: Pneumonia
  3. AVELOX [Suspect]
     Active Substance: MOXIFLOXACIN HYDROCHLORIDE
     Indication: Influenza

REACTIONS (6)
  - Epilepsy [Recovering/Resolving]
  - Loss of consciousness [Recovered/Resolved]
  - Convulsions local [Recovering/Resolving]
  - Gaze palsy [None]
  - Fall [None]
  - Drooling [None]

NARRATIVE: CASE EVENT DATE: 20231231
